FAERS Safety Report 9366747 (Version 1)
Quarter: 2013Q2

REPORT INFORMATION
  Report Type: Spontaneous
  Country: ES (occurrence: None)
  Receive Date: 20130620
  Receipt Date: 20130620
  Transmission Date: 20140414
  Serious: Yes (Hospitalization)
  Sender: FDA-Public Use
  Company Number: VAL_02594_2013

PATIENT
  Age: 52 Year
  Sex: Female

DRUGS (6)
  1. CALCITRIOL [Suspect]
     Indication: HYPOPARATHYROIDISM
     Dosage: 1 UG (DAILY)?0.5 UG (DAILY)
  2. CALCITRIOL [Suspect]
     Indication: HYPOTHYROIDISM
     Dosage: 1 UG (DAILY)?0.5 UG (DAILY)
  3. CALCIUM CARBONATE [Suspect]
     Indication: HYPOPARATHYROIDISM
     Route: 048
  4. CALCIUM CARBONATE [Suspect]
     Indication: HYPOTHYROIDISM
     Route: 048
  5. LEVOTHYROXINE [Suspect]
     Indication: HYPOPARATHYROIDISM
     Dosage: 150UG [DAILY]}
  6. LEVOTHYROXINE [Suspect]
     Indication: HYPOTHYROIDISM
     Dosage: 150UG [DAILY]}

REACTIONS (4)
  - Milk-alkali syndrome [None]
  - Hypercalcaemia [None]
  - Metabolic alkalosis [None]
  - Renal failure [None]
